FAERS Safety Report 19285180 (Version 2)
Quarter: 2021Q2

REPORT INFORMATION
  Report Type: Spontaneous
  Country: US (occurrence: US)
  Receive Date: 20210521
  Receipt Date: 20210606
  Transmission Date: 20210717
  Serious: Yes (Hospitalization)
  Sender: FDA-Public Use
  Company Number: US-BRISTOL-MYERS SQUIBB COMPANY-BMS-2021-049039

PATIENT
  Age: 21 Year
  Sex: Male

DRUGS (2)
  1. ORENCIA [Suspect]
     Active Substance: ABATACEPT
     Indication: PRODUCT USED FOR UNKNOWN INDICATION
     Dosage: 125 MILLIGRAM, QWK
     Route: 050
  2. ORENCIA [Suspect]
     Active Substance: ABATACEPT
     Dosage: ONCE A DAY ON MONDAY, WEDNESDAY, FRIDAY
     Route: 058

REACTIONS (2)
  - Hospitalisation [Unknown]
  - Off label use [Unknown]
